FAERS Safety Report 15791129 (Version 1)
Quarter: 2019Q1

REPORT INFORMATION
  Report Type: Spontaneous
  Country: US (occurrence: US)
  Receive Date: 20190104
  Receipt Date: 20190104
  Transmission Date: 20190417
  Serious: No
  Sender: FDA-Public Use
  Company Number: US-AMNEAL PHARMACEUTICALS-2018AMN00598

PATIENT
  Sex: Female

DRUGS (1)
  1. GUANFACINE. [Suspect]
     Active Substance: GUANFACINE
     Dosage: UNK
     Route: 065

REACTIONS (4)
  - Muscle spasms [Unknown]
  - Drug ineffective [Unknown]
  - Paraesthesia [Unknown]
  - Hypoaesthesia [Unknown]
